FAERS Safety Report 20946417 (Version 4)
Quarter: 2022Q4

REPORT INFORMATION
  Report Type: Spontaneous
  Country: NL (occurrence: NL)
  Receive Date: 20220610
  Receipt Date: 20221115
  Transmission Date: 20230112
  Serious: Yes (Life-Threatening, Hospitalization, Other)
  Sender: FDA-Public Use
  Company Number: NL-PFIZER INC-202200779854

PATIENT
  Age: 31 Year
  Sex: Female

DRUGS (8)
  1. VENLAFAXINE HCL [Suspect]
     Active Substance: VENLAFAXINE HYDROCHLORIDE
     Indication: Antidepressant therapy
     Dosage: 150 MG, DAILY
     Route: 048
  2. VENLAFAXINE HCL [Suspect]
     Active Substance: VENLAFAXINE HYDROCHLORIDE
     Dosage: 18 G, 120 EXTENDED RELEASE CAPSULES
     Route: 048
  3. RIVAROXABAN [Suspect]
     Active Substance: RIVAROXABAN
     Indication: Venous thrombosis
     Dosage: 20 MG, DAILY
  4. MIDAZOLAM HYDROCHLORIDE [Suspect]
     Active Substance: MIDAZOLAM HYDROCHLORIDE
     Indication: Sedation
     Dosage: 5 MG, ADITIONAL LOADING DOSE
     Route: 030
  5. SUFENTANIL [Suspect]
     Active Substance: SUFENTANIL
     Indication: Vasoconstriction
     Dosage: UNK
  6. NOREPINEPHRINE [Suspect]
     Active Substance: NOREPINEPHRINE
     Indication: Vasoconstriction
     Dosage: UNK
  7. SODIUM SULFATE [Suspect]
     Active Substance: SODIUM SULFATE
     Indication: Laxative supportive care
     Dosage: UNK
  8. VALPROIC ACID [Suspect]
     Active Substance: VALPROIC ACID
     Indication: Tonic convulsion
     Dosage: UNK

REACTIONS (24)
  - Metabolic acidosis [Recovering/Resolving]
  - Intentional overdose [Recovering/Resolving]
  - Multiple organ dysfunction syndrome [Recovering/Resolving]
  - Shock [Recovering/Resolving]
  - Oliguria [Recovering/Resolving]
  - Lactic acidosis [Recovering/Resolving]
  - Suicide attempt [Recovering/Resolving]
  - Apnoea [Recovering/Resolving]
  - Hepatic failure [Recovering/Resolving]
  - Muscle spasms [Recovering/Resolving]
  - Respiratory acidosis [Recovering/Resolving]
  - Trismus [Recovering/Resolving]
  - Sinus tachycardia [Recovering/Resolving]
  - Drug level increased [Recovering/Resolving]
  - Serotonin syndrome [Recovering/Resolving]
  - Hyperthermia [Recovering/Resolving]
  - Toxicity to various agents [Recovering/Resolving]
  - Tonic convulsion [Recovering/Resolving]
  - Electrocardiogram QT prolonged [Recovering/Resolving]
  - Loss of consciousness [Recovering/Resolving]
  - Seizure [Recovering/Resolving]
  - Delirium [Recovering/Resolving]
  - Mydriasis [Recovering/Resolving]
  - Blood pressure decreased [Recovering/Resolving]
